FAERS Safety Report 26100748 (Version 1)
Quarter: 2025Q4

REPORT INFORMATION
  Report Type: Spontaneous
  Country: US (occurrence: US)
  Receive Date: 20251128
  Receipt Date: 20251128
  Transmission Date: 20260118
  Serious: No
  Sender: MIRUM PHARMACEUTICALS
  Company Number: US-MIRUM PHARMACEUTICALS, INC.-US-MIR-25-00489

PATIENT
  Sex: Female
  Weight: 54.5 kg

DRUGS (3)
  1. MARALIXIBAT [Suspect]
     Active Substance: MARALIXIBAT
     Indication: Progressive familial intrahepatic cholestasis
     Dosage: 0.8 MILLILITER, QD
     Route: 048
     Dates: start: 20250708, end: 202507
  2. MARALIXIBAT [Suspect]
     Active Substance: MARALIXIBAT
     Dosage: UNK (DOSE DECREASED)
     Route: 048
     Dates: start: 202507, end: 20250730
  3. URSODIOL [Concomitant]
     Active Substance: URSODIOL
     Indication: Product used for unknown indication
     Dosage: 250 MILLIGRAM, BID
     Route: 065

REACTIONS (4)
  - Decreased appetite [Recovered/Resolved]
  - Diarrhoea [Recovered/Resolved]
  - Abdominal pain [Recovered/Resolved]
  - Drug intolerance [Unknown]

NARRATIVE: CASE EVENT DATE: 20250101
